FAERS Safety Report 4474151-X (Version None)
Quarter: 2004Q4

REPORT INFORMATION
  Report Type: 
  Country: None (occurrence: None)
  Receive Date: 20041008
  Receipt Date: 20040924
  Transmission Date: 20050328
  Serious: Yes (Hospitalization)
  Sender: FDA-Public Use
  Company Number: 209387

PATIENT
  Age: 61 Year
  Sex: Female
  Weight: 65.8 kg

DRUGS (20)
  1. RITUXAN [Suspect]
     Indication: LUNG TRANSPLANT REJECTION
     Dosage: 375 MG/M2, INTRAVENOUS
     Route: 042
     Dates: start: 20040422, end: 20040513
  2. ZANTAC [Concomitant]
  3. TYLENOL [Concomitant]
  4. PHENERGAN [Concomitant]
  5. ATIVAN [Concomitant]
  6. SSI (INSULIN) [Concomitant]
  7. ASPIRIN [Concomitant]
  8. CEFEPIME (CEFEPIME) [Concomitant]
  9. LEVOFLOXACIN [Concomitant]
  10. MINOCYCLINE HCL [Concomitant]
  11. VALACYCLOVIR (VALACYCLOVIR) [Concomitant]
  12. HEPARIN [Concomitant]
  13. COUMADIN [Concomitant]
  14. PREDNISONE [Concomitant]
  15. ATOVACUONA (ATOVAQUONE) [Concomitant]
  16. ATORVASTATIN (ATORVASTATIN CALCIUM) [Concomitant]
  17. FESO4 (FERROUS SULFATE) [Concomitant]
  18. LEXAPRO [Concomitant]
  19. MAGNESIUM OXIDE (MAGNESIUM OXIDE) [Concomitant]
  20. MVI (MULTIVITAMINS NOS) [Concomitant]

REACTIONS (10)
  - ANAEMIA [None]
  - BRONCHOPULMONARY ASPERGILLOSIS [None]
  - DEHYDRATION [None]
  - DIARRHOEA [None]
  - HAEMOLYTIC URAEMIC SYNDROME [None]
  - HYPOXIA [None]
  - IMMUNOSUPPRESSANT DRUG LEVEL INCREASED [None]
  - LOBAR PNEUMONIA [None]
  - RENAL FAILURE [None]
  - THROMBOTIC THROMBOCYTOPENIC PURPURA [None]
